FAERS Safety Report 4538761-3 (Version None)
Quarter: 2004Q4

REPORT INFORMATION
  Report Type: 
  Country: None (occurrence: None)
  Receive Date: 20041222
  Receipt Date: 20041209
  Transmission Date: 20050328
  Serious: Yes (Other)
  Sender: FDA-Public Use
  Company Number: 8008322

PATIENT
  Age: 13 Month
  Sex: Female
  Weight: 9.6 kg

DRUGS (4)
  1. KEPPRA [Suspect]
     Indication: CONVULSION
     Dosage: 5 ML 1/D PO
     Route: 048
     Dates: start: 20041201, end: 20041204
  2. KEPPRA [Suspect]
     Indication: CONVULSION
     Dosage: 5 ML 2/D PO
     Route: 048
     Dates: start: 20041205, end: 20041208
  3. CAPTOPRIL [Concomitant]
  4. LASIX [Concomitant]

REACTIONS (2)
  - HYPOTONIA [None]
  - MEDICATION ERROR [None]
